FAERS Safety Report 8332133-1 (Version None)
Quarter: 2012Q2

REPORT INFORMATION
  Report Type: 
  Country: None (occurrence: None)
  Receive Date: 20120502
  Receipt Date: 20120423
  Transmission Date: 20120825
  Serious: Yes (Hospitalization)
  Sender: FDA-Public Use
  Company Number: US-MYLANLABS-2012S1007523

PATIENT
  Age: 42 Year
  Sex: Male
  Weight: 94 kg

DRUGS (9)
  1. THIOTHIXENE /00099101/ [Concomitant]
     Route: 048
  2. ZOCOR [Concomitant]
     Route: 048
  3. DULOXETINE HYDROCHLORIDE [Concomitant]
     Route: 048
  4. DEPAKOTE [Concomitant]
     Route: 048
  5. OXYBUTYNIN [Concomitant]
     Route: 048
  6. METOPROLOL TARTRATE [Concomitant]
     Route: 048
  7. KLONOPIN [Concomitant]
     Route: 048
  8. PRILOSEC [Concomitant]
     Route: 048
  9. CLOZAPINE [Suspect]
     Indication: SCHIZOPHRENIA, PARANOID TYPE
     Dates: start: 20090526, end: 20120406

REACTIONS (4)
  - SEPSIS [None]
  - LEUKOPENIA [None]
  - CELLULITIS [None]
  - GRANULOCYTOPENIA [None]
